FAERS Safety Report 5959748-X (Version None)
Quarter: 2008Q4

REPORT INFORMATION
  Report Type: 
  Country: None (occurrence: None)
  Receive Date: 20081120
  Receipt Date: 20081112
  Transmission Date: 20090506
  Serious: Yes (Hospitalization, Other)
  Sender: FDA-Public Use
  Company Number: GB-BRISTOL-MYERS SQUIBB COMPANY-14405997

PATIENT
  Age: 33 Year
  Sex: Female

DRUGS (3)
  1. METFORMIN HCL [Suspect]
     Indication: GESTATIONAL DIABETES
  2. ETHANOL [Concomitant]
  3. COCAINE [Concomitant]

REACTIONS (3)
  - INTRA-UTERINE DEATH [None]
  - LACTIC ACIDOSIS [None]
  - PREGNANCY [None]
